FAERS Safety Report 6380613-0 (Version None)
Quarter: 2009Q3

REPORT INFORMATION
  Report Type: 
  Country: None (occurrence: None)
  Receive Date: 20090923
  Receipt Date: 20090909
  Transmission Date: 20100115
  Serious: Yes (Hospitalization)
  Sender: FDA-Public Use
  Company Number: 2009SP000781

PATIENT
  Age: 68 Year
  Sex: Male

DRUGS (10)
  1. ESZOPICLONE [Suspect]
     Indication: INSOMNIA
     Dosage: ORAL, ORAL
     Route: 048
     Dates: start: 20090302, end: 20090306
  2. ESZOPICLONE [Suspect]
     Indication: INSOMNIA
     Dosage: ORAL, ORAL
     Route: 048
     Dates: start: 20090316, end: 20090815
  3. SULPIRIDE [Concomitant]
  4. POLAPREZINC [Concomitant]
  5. GANATON [Concomitant]
  6. POLYFUL [Concomitant]
  7. VITAMIN E [Concomitant]
  8. NICERGOLINE [Concomitant]
  9. AFLOQUALONE [Concomitant]
  10. RETICOLAN [Concomitant]

REACTIONS (8)
  - GASTRIC POLYPS [None]
  - HIATUS HERNIA [None]
  - IRON DEFICIENCY ANAEMIA [None]
  - LOSS OF CONSCIOUSNESS [None]
  - MALLORY-WEISS SYNDROME [None]
  - MELAENA [None]
  - OESOPHAGITIS HAEMORRHAGIC [None]
  - REFLUX OESOPHAGITIS [None]
